FAERS Safety Report 9736670 (Version 1)
Quarter: 2013Q4

REPORT INFORMATION
  Report Type: Spontaneous
  Country: US (occurrence: US)
  Receive Date: 20131206
  Receipt Date: 20131206
  Transmission Date: 20140711
  Serious: No
  Sender: FDA-Public Use
  Company Number: US-GILEAD-2009-0022900

PATIENT
  Sex: Female
  Weight: 147.87 kg

DRUGS (23)
  1. LETAIRIS [Suspect]
     Indication: PULMONARY ARTERIAL HYPERTENSION
     Route: 048
     Dates: start: 20080702
  2. GABAPENTIN [Concomitant]
  3. CYCLOBENZAPRINE [Concomitant]
  4. PREDNISONE [Concomitant]
  5. LORTAB [Concomitant]
  6. PRILOSEC [Concomitant]
  7. NITROSTAT [Concomitant]
  8. DOCUSATE SODIUM [Concomitant]
  9. DARVOCET N-100 [Concomitant]
  10. LEVOTHYROXINE [Concomitant]
  11. TRAZODONE [Concomitant]
  12. PHAZYME [Concomitant]
  13. ALBUTEROL [Concomitant]
  14. METOCLOPRAMIDE [Concomitant]
  15. DIGOXIN [Concomitant]
  16. ^ANTIBIOTIC CREAM^ [Concomitant]
  17. NITROGLYCERIN [Concomitant]
  18. RANITIDINE [Concomitant]
  19. APAP [Concomitant]
  20. ASPIRIN [Concomitant]
  21. THERA TEARS [Concomitant]
  22. AMOXICILLIN [Concomitant]
  23. ^RESCUE INHALER^ [Concomitant]

REACTIONS (2)
  - Palpitations [Unknown]
  - Dyspnoea [Unknown]
